FAERS Safety Report 7061224-0 (Version None)
Quarter: 2010Q4

REPORT INFORMATION
  Report Type: 
  Country: None (occurrence: None)
  Receive Date: 20101026
  Receipt Date: 20101020
  Transmission Date: 20110411
  Serious: No
  Sender: FDA-Public Use
  Company Number: US-PFIZER INC-2010133756

PATIENT
  Sex: Female
  Weight: 88.889 kg

DRUGS (1)
  1. GLUCOTROL XL [Suspect]
     Dosage: 10 MG, UNK
     Route: 048
     Dates: start: 20100101

REACTIONS (1)
  - CONSTIPATION [None]
